FAERS Safety Report 10767086 (Version 1)
Quarter: 2015Q1

REPORT INFORMATION
  Report Type: Report from Study
  Country: US (occurrence: US)
  Receive Date: 20150205
  Receipt Date: 20150205
  Transmission Date: 20150721
  Serious: Yes (Other)
  Sender: FDA-Public Use
  Company Number: US-PFIZER INC-2015048043

PATIENT
  Sex: Male

DRUGS (3)
  1. PREDNISONE. [Suspect]
     Active Substance: PREDNISONE
     Indication: PROSTATE CANCER METASTATIC
     Dosage: 5 MG TWICE DAILY, CYCLIC (DAY 1 OF 21-DAY CYCLE)
     Route: 048
  2. ORTERONEL [Suspect]
     Active Substance: ORTERONEL
     Indication: PROSTATE CANCER METASTATIC
     Dosage: TWICE DAILY AT RP2D DEFINED IN PHASE1 FROM DAY 15 OF 21-DAY CYCLE
     Route: 048
  3. DOCETAXEL. [Suspect]
     Active Substance: DOCETAXEL
     Indication: PROSTATE CANCER METASTATIC
     Dosage: 75 MG/M2, CYCLIC ( DAY 1 OF EACH CYCLE OF 21 DAYS)
     Route: 042

REACTIONS (2)
  - Amylase increased [Unknown]
  - Lipase increased [Unknown]
